FAERS Safety Report 18496698 (Version 1)
Quarter: 2020Q4

REPORT INFORMATION
  Report Type: Spontaneous
  Country: AU (occurrence: AU)
  Receive Date: 20201112
  Receipt Date: 20201112
  Transmission Date: 20210114
  Serious: Yes (Disabling, Other)
  Sender: FDA-Public Use
  Company Number: AU-PFIZER INC-2019381300

PATIENT
  Age: 66 Year
  Sex: Male

DRUGS (14)
  1. APOMINE [Suspect]
     Active Substance: APOMORPHINE HYDROCHLORIDE
     Dosage: 1.3ML/HR (8AM-9PM), DAILY
     Route: 058
  2. MOVAPO [Suspect]
     Active Substance: APOMORPHINE HYDROCHLORIDE
     Indication: PARKINSON^S DISEASE
     Dosage: 5 MG, UNK
     Route: 058
  3. MIRTAZAPINE. [Concomitant]
     Active Substance: MIRTAZAPINE
     Dosage: UNK
  4. ESCITALOPRAM [Concomitant]
     Active Substance: ESCITALOPRAM OXALATE
     Dosage: UNK
  5. APOMINE [Suspect]
     Active Substance: APOMORPHINE HYDROCHLORIDE
     Dosage: 1.4ML/HR 8AM-6PM
     Route: 058
  6. MADOPAR [Suspect]
     Active Substance: BENSERAZIDE HYDROCHLORIDE\LEVODOPA
     Dosage: 200/50MG 1 1/4 * 5 DAILY
  7. APOMINE [Suspect]
     Active Substance: APOMORPHINE HYDROCHLORIDE
     Indication: PARKINSON^S DISEASE
     Dosage: 100MG/20MLS, DAILY SC INFUSION (F1-1.3)
     Route: 058
  8. APOMINE [Suspect]
     Active Substance: APOMORPHINE HYDROCHLORIDE
     Dosage: 1.4ML/HR (8AM-4PM), 1.5ML/HR (4PM-8PM), 1.3ML/HR (8PM-8AM)
     Route: 058
  9. DOPAMINE HCL [Suspect]
     Active Substance: DOPAMINE HYDROCHLORIDE
     Dosage: UNK
  10. MADOPAR [Suspect]
     Active Substance: BENSERAZIDE HYDROCHLORIDE\LEVODOPA
     Dosage: 200/50MG, 4X/DAY FROM 6.00AM TO 6.00PM THEN 1.25 TABLETS AT 9.00PM, MIDNIGHT AND 3.00AM
  11. APOMINE [Suspect]
     Active Substance: APOMORPHINE HYDROCHLORIDE
     Dosage: 1.0ML/HR (9PM-8AM), DAILY
     Route: 058
  12. APOMINE [Suspect]
     Active Substance: APOMORPHINE HYDROCHLORIDE
     Dosage: 1.3ML/HR (6PM-8AM)
     Route: 058
  13. APOMINE [Suspect]
     Active Substance: APOMORPHINE HYDROCHLORIDE
     Dosage: 1.3ML/HR (8AM-9PM), 1.0ML/HR (9PM-8AM)
     Route: 058
  14. OXAZEPAM. [Concomitant]
     Active Substance: OXAZEPAM
     Dosage: 15 MG, UNK

REACTIONS (19)
  - Hypnopompic hallucination [Unknown]
  - Sensory disturbance [Unknown]
  - Illusion [Unknown]
  - Anxiety [Unknown]
  - Akinesia [Unknown]
  - Pain [Unknown]
  - On and off phenomenon [Unknown]
  - Musculoskeletal pain [Unknown]
  - Dystonia [Unknown]
  - Pain in extremity [Unknown]
  - Back pain [Unknown]
  - Sleep disorder [Unknown]
  - Drug ineffective [Unknown]
  - Musculoskeletal stiffness [Unknown]
  - Dyskinesia [Unknown]
  - Sciatica [Unknown]
  - Freezing phenomenon [Unknown]
  - Panic disorder [Unknown]
  - Orthostatic hypotension [Unknown]
